FAERS Safety Report 8435091-4 (Version None)
Quarter: 2012Q2

REPORT INFORMATION
  Report Type: 
  Country: None (occurrence: None)
  Receive Date: 20120614
  Receipt Date: 20120608
  Transmission Date: 20120825
  Serious: Yes (Other)
  Sender: FDA-Public Use
  Company Number: PHHY2012CA050026

PATIENT
  Sex: Male

DRUGS (1)
  1. SANDOSTATIN LAR [Suspect]
     Indication: LUNG NEOPLASM MALIGNANT
     Dosage: 20 MG, QMO
     Route: 030
     Dates: start: 20120421

REACTIONS (9)
  - NAUSEA [None]
  - OSTEOARTHRITIS [None]
  - CHEST DISCOMFORT [None]
  - AORTIC ANEURYSM [None]
  - WEIGHT DECREASED [None]
  - DYSGEUSIA [None]
  - ASTHENIA [None]
  - VOMITING [None]
  - HYPOPHAGIA [None]
